FAERS Safety Report 17188224 (Version 2)
Quarter: 2020Q1

REPORT INFORMATION
  Report Type: Spontaneous
  Country: FR (occurrence: FR)
  Receive Date: 20191221
  Receipt Date: 20200213
  Transmission Date: 20200409
  Serious: Yes (Hospitalization, Other)
  Sender: FDA-Public Use
  Company Number: NVSC2019FR076023

PATIENT
  Age: 72 Year
  Sex: Male
  Weight: 88 kg

DRUGS (2)
  1. AMLOR [Concomitant]
     Active Substance: AMLODIPINE BESYLATE
     Indication: PRODUCT USED FOR UNKNOWN INDICATION
     Dosage: 5 MG, QD
     Route: 048
  2. VOTRIENT [Suspect]
     Active Substance: PAZOPANIB HYDROCHLORIDE
     Indication: SARCOMA
     Dosage: 800 MG, QD
     Route: 048
     Dates: start: 20190126, end: 20190221

REACTIONS (13)
  - Cholangitis [Unknown]
  - Jaundice [Unknown]
  - Hepatitis toxic [Unknown]
  - Faeces pale [Unknown]
  - Chromaturia [Unknown]
  - Portal fibrosis [Unknown]
  - Pruritus [Unknown]
  - Hepatocellular injury [Recovered/Resolved]
  - Cholestasis [Recovered/Resolved]
  - Cholestasis [Unknown]
  - Hepatic steatosis [Unknown]
  - Diarrhoea [Unknown]
  - Fatigue [Unknown]

NARRATIVE: CASE EVENT DATE: 20190221
